FAERS Safety Report 7973640-0 (Version None)
Quarter: 2011Q4

REPORT INFORMATION
  Report Type: 
  Country: None (occurrence: None)
  Receive Date: 20111213
  Receipt Date: 20111209
  Transmission Date: 20120403
  Serious: Yes (Other)
  Sender: FDA-Public Use
  Company Number: US-ROCHE-1020763

PATIENT
  Sex: Female

DRUGS (1)
  1. ACCUTANE [Suspect]
     Indication: PRODUCT USED FOR UNKNOWN INDICATION
     Dates: start: 19900101, end: 20020101

REACTIONS (3)
  - LARGE INTESTINE PERFORATION [None]
  - COLECTOMY [None]
  - IRRITABLE BOWEL SYNDROME [None]
